FAERS Safety Report 8276113-3 (Version None)
Quarter: 2012Q2

REPORT INFORMATION
  Report Type: 
  Country: None (occurrence: None)
  Receive Date: 20120405
  Receipt Date: 20120326
  Transmission Date: 20120825
  Serious: Yes (Other)
  Sender: FDA-Public Use
  Company Number: 2012-031603

PATIENT
  Age: 67 Year
  Sex: Male

DRUGS (3)
  1. XARELTO [Suspect]
     Indication: THROMBOSIS PROPHYLAXIS
     Dosage: ORAL
  2. XARELTO [Suspect]
     Indication: HIP ARTHROPLASTY
     Dosage: ORAL
  3. DOXYCYCLINE [Suspect]

REACTIONS (1)
  - RASH GENERALISED [None]
